FAERS Safety Report 24551721 (Version 1)
Quarter: 2024Q4

REPORT INFORMATION
  Report Type: Spontaneous
  Country: FR (occurrence: FR)
  Receive Date: 20241026
  Receipt Date: 20241026
  Transmission Date: 20250115
  Serious: Yes (Other)
  Sender: AUROBINDO
  Company Number: FR-AFSSAPS-NT2024001221

PATIENT
  Age: 37 Year
  Sex: Female
  Weight: 68.7 kg

DRUGS (2)
  1. CLOZAPINE [Suspect]
     Active Substance: CLOZAPINE
     Indication: Schizophrenia
     Dosage: 35 MILLIGRAM, DAILY (375 MG PER DAY IN 2 DOSES, THEN 300 MG FROM 05/16/2024)
     Route: 048
  2. LOXAPINE [Concomitant]
     Active Substance: LOXAPINE
     Indication: Product used for unknown indication
     Dosage: UNK, AS NECESSARY
     Route: 048

REACTIONS (2)
  - Oculogyric crisis [Recovered/Resolved]
  - Epilepsy [Recovered/Resolved]

NARRATIVE: CASE EVENT DATE: 20240101
